FAERS Safety Report 13511592 (Version 1)
Quarter: 2017Q2

REPORT INFORMATION
  Report Type: Spontaneous
  Country: US (occurrence: US)
  Receive Date: 20170503
  Receipt Date: 20170503
  Transmission Date: 20170830
  Serious: Yes (Other)
  Sender: FDA-Public Use
  Company Number: None

PATIENT
  Age: 60 Year
  Sex: Female
  Weight: 79.65 kg

DRUGS (10)
  1. DOXYCYCLINE MONOHYDRATE [Concomitant]
     Active Substance: DOXYCYCLINE
  2. NP THYROID 60 [Suspect]
     Active Substance: LEVOTHYROXINE\LIOTHYRONINE
     Indication: HYPOTHYROIDISM
     Dosage: ?          QUANTITY:30 TABLET(S);?
     Route: 048
     Dates: start: 20170426, end: 20170427
  3. ARMOUR THYROID [Concomitant]
     Active Substance: THYROID, PORCINE
  4. METHYLPREDNISOLONE. [Concomitant]
     Active Substance: METHYLPREDNISOLONE
  5. PREDNISOLONE ACE [Concomitant]
  6. MEPERIDINE [Concomitant]
     Active Substance: MEPERIDINE
  7. FLAXSEED [Concomitant]
     Active Substance: FLAX SEED
  8. ASPIRIN. [Concomitant]
     Active Substance: ASPIRIN
  9. SYSTANE (HYPROMELLOSE 2910 (4000 MPA.S)) [Concomitant]
     Active Substance: HYPROMELLOSE 2910 (4000 MPA.S)
  10. MARINOL [Concomitant]
     Active Substance: DRONABINOL

REACTIONS (5)
  - Pneumonia [None]
  - Product odour abnormal [None]
  - Product contamination [None]
  - Bacterial infection [None]
  - Nausea [None]
